FAERS Safety Report 8124413 (Version 3)
Quarter: 2013Q1

REPORT INFORMATION
  Report Type: Spontaneous
  Country: US (occurrence: US)
  Receive Date: 20110907
  Receipt Date: 20130220
  Transmission Date: 20140127
  Serious: Yes (Hospitalization)
  Sender: FDA-Public Use
  Company Number: US-GLAXOSMITHKLINE-A0897051A

PATIENT
  Age: 78 Year
  Sex: Female

DRUGS (4)
  1. AVANDIA [Suspect]
     Indication: TYPE 2 DIABETES MELLITUS
     Dosage: 4MG PER DAY
     Route: 048
     Dates: start: 20040406, end: 200702
  2. AMARYL [Concomitant]
  3. EVISTA [Concomitant]
  4. SYNTHROID [Concomitant]

REACTIONS (4)
  - Atrial fibrillation [Not Recovered/Not Resolved]
  - Myocardial ischaemia [Unknown]
  - Cardiac failure congestive [Unknown]
  - Cardiomyopathy [Unknown]
